FAERS Safety Report 8837178 (Version 2)
Quarter: 2015Q1

REPORT INFORMATION
  Report Type: Report from Study
  Country: US (occurrence: US)
  Receive Date: 20121011
  Receipt Date: 20150127
  Transmission Date: 20150721
  Serious: Yes (Hospitalization)
  Sender: FDA-Public Use
  Company Number: US-ROCHE-1139752

PATIENT
  Age: 1 Year
  Sex: Female
  Weight: 11.6 kg

DRUGS (4)
  1. PROTROPIN [Suspect]
     Active Substance: SOMATREM
     Route: 058
  2. SYNTHROID [Concomitant]
     Active Substance: LEVOTHYROXINE SODIUM
     Route: 065
  3. PROTROPIN [Suspect]
     Active Substance: SOMATREM
     Indication: DWARFISM
     Dosage: 0.2 CC
     Route: 058
     Dates: start: 19870612
  4. PROTROPIN [Suspect]
     Active Substance: SOMATREM
     Indication: HYPOPITUITARISM
     Route: 058

REACTIONS (3)
  - Malaise [Unknown]
  - Hypoglycaemic seizure [Unknown]
  - Adrenal insufficiency [Unknown]

NARRATIVE: CASE EVENT DATE: 198806
